FAERS Safety Report 13544374 (Version 1)
Quarter: 2017Q2

REPORT INFORMATION
  Report Type: Report from Study
  Country: US (occurrence: US)
  Receive Date: 20170515
  Receipt Date: 20170515
  Transmission Date: 20170830
  Serious: Yes (Other)
  Sender: FDA-Public Use
  Company Number: US-BAUSCH-BL-2017-014471

PATIENT
  Age: 68 Year
  Sex: Male

DRUGS (8)
  1. LOTEMAX [Suspect]
     Active Substance: LOTEPREDNOL ETABONATE
     Dosage: IN THE RIGHT EYE FOR WEEK 3
     Route: 047
     Dates: start: 201704
  2. PROLENSA [Suspect]
     Active Substance: BROMFENAC SODIUM
     Indication: PREOPERATIVE CARE
     Dosage: PRE-OPERATIVELY
     Route: 047
     Dates: start: 20170401, end: 20170402
  3. LOTEMAX [Suspect]
     Active Substance: LOTEPREDNOL ETABONATE
     Dosage: IN THE RIGHT EYE FOR WEEK 4
     Route: 047
     Dates: start: 201704
  4. BESIVANCE [Suspect]
     Active Substance: BESIFLOXACIN
     Indication: PREOPERATIVE CARE
     Dosage: IN THE RIGHT EYE PRE-OPERATIVELY
     Route: 047
     Dates: start: 20170401, end: 20170402
  5. LOTEMAX [Suspect]
     Active Substance: LOTEPREDNOL ETABONATE
     Dosage: IN THE RIGHT EYE FOR WEEK 2
     Route: 047
     Dates: start: 201704
  6. PROLENSA [Suspect]
     Active Substance: BROMFENAC SODIUM
     Indication: POSTOPERATIVE CARE
     Dosage: POST-OPERATIVELY
     Route: 047
     Dates: start: 201704
  7. BESIVANCE [Suspect]
     Active Substance: BESIFLOXACIN
     Indication: POSTOPERATIVE CARE
     Dosage: IN THE RIGHT EYE POST OPERATIVELY
     Route: 047
     Dates: start: 201704
  8. LOTEMAX [Suspect]
     Active Substance: LOTEPREDNOL ETABONATE
     Indication: POSTOPERATIVE CARE
     Dosage: IN THE RIGHT EYE FOR WEEK 1
     Route: 047
     Dates: start: 201704

REACTIONS (2)
  - Anterior chamber disorder [Unknown]
  - Intentional product use issue [Unknown]

NARRATIVE: CASE EVENT DATE: 2017
